FAERS Safety Report 5123099-6 (Version None)
Quarter: 2006Q4

REPORT INFORMATION
  Report Type: 
  Country: None (occurrence: None)
  Receive Date: 20061009
  Receipt Date: 20060927
  Transmission Date: 20070319
  Serious: Yes (Death, Other)
  Sender: FDA-Public Use
  Company Number: PHBS2006JP15023

PATIENT
  Age: 41 Year
  Sex: Female

DRUGS (3)
  1. CYCLOSPORINE [Suspect]
     Indication: ALLOGENIC BONE MARROW TRANSPLANTATION THERAPY
     Route: 065
     Dates: start: 20040901, end: 20041024
  2. PROGRAF [Suspect]
     Indication: ALLOGENIC BONE MARROW TRANSPLANTATION THERAPY
     Route: 065
     Dates: start: 20041215
  3. METHYLPREDNISOLONE [Concomitant]
     Indication: ALLOGENIC BONE MARROW TRANSPLANTATION THERAPY
     Dates: start: 20041107

REACTIONS (3)
  - ASPERGILLOSIS [None]
  - ENTEROCOLITIS FUNGAL [None]
  - GRAFT VERSUS HOST DISEASE [None]
